FAERS Safety Report 6150664-X (Version None)
Quarter: 2009Q2

REPORT INFORMATION
  Report Type: 
  Country: None (occurrence: None)
  Receive Date: 20090409
  Receipt Date: 20090331
  Transmission Date: 20091009
  Serious: Yes (Hospitalization)
  Sender: FDA-Public Use
  Company Number: JP-ABBOTT-08P-087-0458715-00

PATIENT
  Age: 77 Year
  Sex: Male

DRUGS (4)
  1. LEUPLIN SR FOR INJECTION KIT [Suspect]
     Indication: PROSTATE CANCER STAGE I
     Route: 058
     Dates: start: 20070920
  2. LEUPLIN SR FOR INJECTION KIT [Suspect]
     Dates: start: 20070323, end: 20070820
  3. CASODEX [Concomitant]
     Indication: PROSTATE CANCER STAGE I
     Route: 048
  4. SUNRYTHM [Concomitant]
     Indication: ARRHYTHMIA
     Route: 048

REACTIONS (3)
  - CONSTIPATION [None]
  - DIVERTICULUM INTESTINAL HAEMORRHAGIC [None]
  - MELAENA [None]
